FAERS Safety Report 7060208-6 (Version None)
Quarter: 2010Q4

REPORT INFORMATION
  Report Type: 
  Country: None (occurrence: None)
  Receive Date: 20101025
  Receipt Date: 20101018
  Transmission Date: 20110411
  Serious: Yes (Hospitalization)
  Sender: FDA-Public Use
  Company Number: DE-TEVA-252410GER

PATIENT
  Age: 18 Year
  Sex: Female

DRUGS (9)
  1. CISPLATIN [Suspect]
     Indication: NASOPHARYNGEAL CANCER
  2. CISPLATIN [Suspect]
  3. CISPLATIN [Suspect]
  4. FLUOROURACIL [Suspect]
     Indication: NASOPHARYNGEAL CANCER
  5. FLUOROURACIL [Suspect]
  6. FOLINIC ACID [Concomitant]
     Indication: NASOPHARYNGEAL CANCER
  7. DEXAMETHASONE [Concomitant]
  8. ONDANSETRON [Concomitant]
  9. APREPITANT [Concomitant]

REACTIONS (1)
  - PERIPHERAL EMBOLISM [None]
